FAERS Safety Report 23677300 (Version 1)
Quarter: 2024Q1

REPORT INFORMATION
  Report Type: Spontaneous
  Country: US (occurrence: None)
  Receive Date: 20240326
  Receipt Date: 20240326
  Transmission Date: 20240410
  Serious: No
  Sender: FDA-Public Use
  Company Number: None

PATIENT
  Age: 36 Year
  Sex: Male
  Weight: 89.55 kg

DRUGS (13)
  1. CABOTEGRAVIR [Suspect]
     Active Substance: CABOTEGRAVIR
     Indication: Prophylaxis against HIV infection
     Dates: start: 20240221
  2. COENZYME Q10 [Concomitant]
     Active Substance: DIETARY SUPPLEMENT\UBIDECARENONE
  3. Nettle Leafs [Concomitant]
  4. VITAMINS [Concomitant]
     Active Substance: VITAMINS
  5. VIAGRA [Concomitant]
     Active Substance: SILDENAFIL CITRATE
  6. MAGNESIUM [Concomitant]
     Active Substance: MAGNESIUM
  7. Vitamin D UVI 2000 [Concomitant]
  8. ARGININE [Concomitant]
     Active Substance: ARGININE
  9. GINGER [Concomitant]
     Active Substance: GINGER
  10. POMEGRANATE [Concomitant]
     Active Substance: POMEGRANATE
  11. Zinc + Iron [Concomitant]
  12. CREATINE [Concomitant]
     Active Substance: CREATINE
  13. Protein Powder [Concomitant]

REACTIONS (10)
  - Headache [None]
  - Fatigue [None]
  - Throat irritation [None]
  - Injection site pain [None]
  - Nasal congestion [None]
  - Rash [None]
  - Burning sensation [None]
  - Gait disturbance [None]
  - Influenza like illness [None]
  - Injection site pain [None]

NARRATIVE: CASE EVENT DATE: 20240322
